FAERS Safety Report 10888680 (Version 2)
Quarter: 2015Q1

REPORT INFORMATION
  Report Type: Spontaneous
  Country: GB (occurrence: GB)
  Receive Date: 20150305
  Receipt Date: 20150311
  Transmission Date: 20150721
  Serious: Yes (Other)
  Sender: FDA-Public Use
  Company Number: GB-JNJFOC-20150217926

PATIENT

DRUGS (2)
  1. ABCIXIMAB [Suspect]
     Active Substance: ABCIXIMAB
     Indication: PERCUTANEOUS CORONARY INTERVENTION
     Dosage: 0.125 MG/KG/MIN INFUSION TO A MAXIMUM OF 10 MG/MIN, OVER 12 HRS
     Route: 065
  2. ABCIXIMAB [Suspect]
     Active Substance: ABCIXIMAB
     Indication: PERCUTANEOUS CORONARY INTERVENTION
     Dosage: 0.25 MG/KG BOLUS
     Route: 065

REACTIONS (2)
  - Thrombosis in device [Unknown]
  - Thrombocytopenia [Unknown]
